FAERS Safety Report 8808892 (Version 1)
Quarter: 2012Q4

REPORT INFORMATION
  Report Type: Spontaneous
  Country: DE (occurrence: None)
  Receive Date: 20120920
  Receipt Date: 20120920
  Transmission Date: 20130627
  Serious: Yes (Life-Threatening, Hospitalization)
  Sender: FDA-Public Use
  Company Number: 2012SA065963

PATIENT
  Sex: Male
  Weight: 180 kg

DRUGS (10)
  1. OXALIPLATIN (OXALIPLATIN) [Suspect]
     Indication: RECTAL CANCER
     Dosage: ; intravenous (not otherwise specified )
     Route: 042
     Dates: start: 20091118
  2. CAPECITABINE [Suspect]
     Dosage: ; oral
     Route: 048
     Dates: start: 20091118, end: 20091223
  3. THERAPEUTIC RADIOPHARMACEUTICALS (THERAPEUTIC RADIOPHARMACEUTICALS) [Suspect]
  4. PANTOZOL [Concomitant]
  5. LASIX [Concomitant]
  6. METFORMIN [Concomitant]
  7. BISOPROLOL [Concomitant]
  8. FLUOXETINE [Concomitant]
  9. ENALAPRIL [Concomitant]
  10. TOREM / GFR / [Concomitant]

REACTIONS (2)
  - Post procedural complication [None]
  - Anastomotic leak [None]
